FAERS Safety Report 9130284 (Version 3)
Quarter: 2013Q2

REPORT INFORMATION
  Report Type: Spontaneous
  Country: DE (occurrence: DE)
  Receive Date: 20130228
  Receipt Date: 20130517
  Transmission Date: 20140414
  Serious: Yes (Death, Hospitalization, Other)
  Sender: FDA-Public Use
  Company Number: DE-UCBSA-079333

PATIENT
  Age: 68 Year
  Sex: Female
  Weight: 75 kg

DRUGS (7)
  1. VIMPAT [Suspect]
     Indication: STATUS EPILEPTICUS
     Route: 042
     Dates: start: 20130209, end: 20130225
  2. KEPPRA [Suspect]
     Indication: STATUS EPILEPTICUS
     Route: 042
     Dates: start: 20130204, end: 20130222
  3. SIMVASTATIN [Concomitant]
     Route: 048
     Dates: start: 20130204, end: 20130219
  4. PROPOFOL [Concomitant]
     Indication: STATUS EPILEPTICUS
     Dosage: CONTINOUS INTRAVENOUS APPLICATION
     Route: 042
     Dates: start: 20130204, end: 20130220
  5. KLACID [Concomitant]
     Indication: PNEUMONIA
     Route: 041
     Dates: start: 20130204, end: 20130219
  6. CEFTRIAXON [Concomitant]
     Indication: MENINGITIS
     Route: 042
     Dates: start: 20130204, end: 20130225
  7. AMPICILLIN [Concomitant]
     Indication: MENINGITIS
     Route: 042
     Dates: start: 20130204, end: 20130207

REACTIONS (3)
  - Renal failure acute [Fatal]
  - Coma [Fatal]
  - Rhabdomyolysis [Unknown]
